FAERS Safety Report 16743030 (Version 1)
Quarter: 2019Q3

REPORT INFORMATION
  Report Type: Spontaneous
  Country: PL (occurrence: PL)
  Receive Date: 20190827
  Receipt Date: 20190827
  Transmission Date: 20191005
  Serious: Yes (Hospitalization, Other)
  Sender: FDA-Public Use
  Company Number: PL-AUROBINDO-AUR-APL-2019-056190

PATIENT

DRUGS (5)
  1. WARFARIN [Interacting]
     Active Substance: WARFARIN
     Indication: PRODUCT USED FOR UNKNOWN INDICATION
     Dosage: UNK, ALTERNATING DOSE 2/3 MG
     Route: 065
  2. FLECAINIDA [Concomitant]
     Indication: PRODUCT USED FOR UNKNOWN INDICATION
     Dosage: 100 MILLIGRAM, TWO TIMES A DAY
     Route: 048
  3. OMEPRAZOLE. [Suspect]
     Active Substance: OMEPRAZOLE
     Indication: PROPHYLAXIS
     Dosage: 40 MILLIGRAM, ONCE A DAY
     Route: 048
  4. BUPRENORPHINE. [Concomitant]
     Active Substance: BUPRENORPHINE
     Indication: PRODUCT USED FOR UNKNOWN INDICATION
     Dosage: 35 MICROGRAM, EVERY HOUR, 35 MCG/H ? TRANSDERMALLY, CHANGED EVERY 72 HOURS.
     Route: 062
  5. NAPROXEN. [Suspect]
     Active Substance: NAPROXEN
     Indication: ARTHRALGIA
     Dosage: 550 MILLIGRAM, TWO TIMES A DAY
     Route: 065

REACTIONS (3)
  - International normalised ratio increased [Recovered/Resolved]
  - Nausea [Recovered/Resolved]
  - Haematemesis [Recovered/Resolved]
